FAERS Safety Report 9022116 (Version 1)
Quarter: 2013Q1

REPORT INFORMATION
  Report Type: Spontaneous
  Country: US (occurrence: US)
  Receive Date: 20130118
  Receipt Date: 20130118
  Transmission Date: 20140127
  Serious: Yes (Hospitalization, Disabling, Other)
  Sender: FDA-Public Use
  Company Number: US-TEVA-381017USA

PATIENT
  Sex: Female

DRUGS (3)
  1. TRI-LO SPRINTEC [Suspect]
     Indication: CONTRACEPTION
     Dates: start: 201106
  2. LEVETIRACETAM [Concomitant]
  3. SERTRALINE [Concomitant]

REACTIONS (4)
  - Pulmonary embolism [Unknown]
  - Haemoptysis [Unknown]
  - Chest pain [Unknown]
  - Lung disorder [Not Recovered/Not Resolved]
